FAERS Safety Report 6396565-3 (Version None)
Quarter: 2009Q4

REPORT INFORMATION
  Report Type: 
  Country: None (occurrence: None)
  Receive Date: 20091012
  Receipt Date: 20091002
  Transmission Date: 20100525
  Serious: Yes (Other)
  Sender: FDA-Public Use
  Company Number: GB-BAYER-200934805GPV

PATIENT
  Age: 52 Year
  Sex: Female

DRUGS (1)
  1. BETAFERON [Suspect]
     Indication: MULTIPLE SCLEROSIS
     Route: 058

REACTIONS (5)
  - CHEST DISCOMFORT [None]
  - FATIGUE [None]
  - MOBILITY DECREASED [None]
  - PAIN IN EXTREMITY [None]
  - PARAESTHESIA [None]
